FAERS Safety Report 19137922 (Version 1)
Quarter: 2021Q2

REPORT INFORMATION
  Report Type: Other
  Country: RU (occurrence: RU)
  Receive Date: 20210414
  Receipt Date: 20210414
  Transmission Date: 20210717
  Serious: Yes (Hospitalization)
  Sender: FDA-Public Use
  Company Number: RU-B.BRAUN MEDICAL INC.-2109354

PATIENT
  Age: 27 Year
  Sex: Female

DRUGS (5)
  1. CEFAZOLIN [Concomitant]
     Active Substance: CEFAZOLIN
  2. GENTAMICIN. [Concomitant]
     Active Substance: GENTAMICIN
  3. METRONIDAZOLE INJECTION USP (5 MG/ML) IN PAB? PLASTIC CONTAINER (NDA 0 [Suspect]
     Active Substance: METRONIDAZOLE
  4. AMOXICILLIN ?CLAVULANIC ACID [Concomitant]
  5. IMIPENEM/ CILASTATIN [Concomitant]

REACTIONS (1)
  - Drug ineffective [None]
